FAERS Safety Report 6695222-3 (Version None)
Quarter: 2010Q2

REPORT INFORMATION
  Report Type: 
  Country: None (occurrence: None)
  Receive Date: 20100423
  Receipt Date: 20100412
  Transmission Date: 20101027
  Serious: Yes (Other)
  Sender: FDA-Public Use
  Company Number: GB-WATSON-2010-05276

PATIENT

DRUGS (1)
  1. SIMVASTATIN (WATSON LABORATORIES) [Suspect]
     Indication: DRUG USE FOR UNKNOWN INDICATION
     Dosage: UNK
     Route: 065

REACTIONS (5)
  - DERMATITIS BULLOUS [None]
  - EOSINOPHILIA [None]
  - ERYTHEMA [None]
  - PYREXIA [None]
  - RASH MACULO-PAPULAR [None]
